FAERS Safety Report 4692392-3 (Version None)
Quarter: 2005Q2

REPORT INFORMATION
  Report Type: 
  Country: None (occurrence: None)
  Receive Date: 20050615
  Receipt Date: 20050527
  Transmission Date: 20051028
  Serious: Yes (Hospitalization, Other)
  Sender: FDA-Public Use
  Company Number: FR_050406286

PATIENT
  Age: 59 Year
  Sex: Male
  Weight: 100 kg

DRUGS (2)
  1. ZYPREXA [Suspect]
     Indication: SCHIZOPHRENIA, PARANOID TYPE
     Dosage: 10 MG DAY
     Dates: start: 20030101, end: 20050301
  2. CLONAZEPAM [Concomitant]

REACTIONS (3)
  - PERSECUTORY DELUSION [None]
  - PHYSICAL ASSAULT [None]
  - TREATMENT NONCOMPLIANCE [None]
